FAERS Safety Report 17870158 (Version 1)
Quarter: 2020Q2

REPORT INFORMATION
  Report Type: Spontaneous
  Country: US (occurrence: US)
  Receive Date: 20200608
  Receipt Date: 20200608
  Transmission Date: 20200714
  Serious: No
  Sender: FDA-Public Use
  Company Number: US-SA-2020SA146379

PATIENT

DRUGS (6)
  1. ATORVASTATIN CALCIUM. [Concomitant]
     Active Substance: ATORVASTATIN CALCIUM
  2. CHANTIX [Concomitant]
     Active Substance: VARENICLINE TARTRATE
  3. DUPIXENT [Suspect]
     Active Substance: DUPILUMAB
     Indication: DERMATITIS ATOPIC
     Dosage: 300 MG, QOW
     Route: 058
     Dates: start: 2017
  4. RAMELTEON [Concomitant]
     Active Substance: RAMELTEON
  5. PROMETHAZINE DM [Concomitant]
     Active Substance: DEXTROMETHORPHAN HYDROBROMIDE\PROMETHAZINE HYDROCHLORIDE
  6. BUDESONIDE;FORMOTEROL [Concomitant]
     Active Substance: BUDESONIDE\FORMOTEROL

REACTIONS (3)
  - Ocular hyperaemia [Unknown]
  - Dry eye [Unknown]
  - Eye irritation [Unknown]
